FAERS Safety Report 20578791 (Version 6)
Quarter: 2024Q3

REPORT INFORMATION
  Report Type: Spontaneous
  Country: US (occurrence: US)
  Receive Date: 20220310
  Receipt Date: 20240816
  Transmission Date: 20241016
  Serious: No
  Sender: PFIZER
  Company Number: US-PFIZER INC-2021702083

PATIENT
  Age: 93 Year
  Sex: Female

DRUGS (3)
  1. IBRANCE [Suspect]
     Active Substance: PALBOCICLIB
     Dosage: 125 MG, CYCLIC
  2. IBRANCE [Suspect]
     Active Substance: PALBOCICLIB
     Dosage: 125 MG, CYCLIC (2 WEEKS ON AND THEN 2 WEEKS OFF)
  3. IBRANCE [Suspect]
     Active Substance: PALBOCICLIB
     Dosage: 125 MG, CYCLIC (TAKE 1 TABLE QD (DAILY) X 3 WEEKS (21D FOLLOWED BY 7 DAYS OFF)
     Route: 048

REACTIONS (3)
  - Ear disorder [Unknown]
  - Hypoacusis [Unknown]
  - Haemoglobin decreased [Not Recovered/Not Resolved]
